FAERS Safety Report 20020687 (Version 2)
Quarter: 2021Q4

REPORT INFORMATION
  Report Type: Spontaneous
  Country: JP (occurrence: JP)
  Receive Date: 20211101
  Receipt Date: 20211207
  Transmission Date: 20220303
  Serious: Yes (Other)
  Sender: FDA-Public Use
  Company Number: JP-MSD-M2021-25328

PATIENT
  Age: 63 Year
  Sex: Male

DRUGS (1)
  1. KEYTRUDA [Suspect]
     Active Substance: PEMBROLIZUMAB
     Indication: Bladder transitional cell carcinoma stage IV
     Dosage: 200 MILLIGRAM, Q3W
     Route: 041

REACTIONS (5)
  - Hyperkalaemia [Recovered/Resolved]
  - Renal impairment [Unknown]
  - Adrenal disorder [Unknown]
  - Malaise [Recovered/Resolved]
  - Anaemia [Recovered/Resolved]
